FAERS Safety Report 5574701-6 (Version None)
Quarter: 2007Q4

REPORT INFORMATION
  Report Type: 
  Country: None (occurrence: None)
  Receive Date: 20071221
  Receipt Date: 20071221
  Transmission Date: 20080405
  Serious: No
  Sender: FDA-Public Use
  Company Number: None

PATIENT
  Age: 78 Year
  Sex: Female
  Weight: 73.4827 kg

DRUGS (2)
  1. VYTORIN [Suspect]
     Indication: HYPERCHOLESTEROLAEMIA
     Dates: start: 20070401, end: 20070801
  2. LOVASTATIN [Suspect]
     Dates: start: 20050401, end: 20070331

REACTIONS (26)
  - ARTHROPATHY [None]
  - ASTHENIA [None]
  - ATAXIA [None]
  - ATROPHY [None]
  - BALANCE DISORDER [None]
  - BRADYKINESIA [None]
  - CEREBROVASCULAR ACCIDENT [None]
  - CHEST PAIN [None]
  - DROOLING [None]
  - DYSARTHRIA [None]
  - DYSPHAGIA [None]
  - FOREIGN BODY TRAUMA [None]
  - GAIT DISTURBANCE [None]
  - HOFFMANN'S SIGN [None]
  - HYPOREFLEXIA [None]
  - JOINT RANGE OF MOTION DECREASED [None]
  - MOTOR NEURONE DISEASE [None]
  - MUSCLE ATROPHY [None]
  - MUSCLE CONTRACTIONS INVOLUNTARY [None]
  - MUSCULAR WEAKNESS [None]
  - NERVOUS SYSTEM DISORDER [None]
  - OESOPHAGEAL HYPOMOTILITY [None]
  - REFLEXES ABNORMAL [None]
  - SPEECH DISORDER [None]
  - TANDEM GAIT TEST ABNORMAL [None]
  - TONGUE DISORDER [None]
